FAERS Safety Report 20728087 (Version 2)
Quarter: 2022Q4

REPORT INFORMATION
  Report Type: Report from Study
  Country: CZ (occurrence: CZ)
  Receive Date: 20220420
  Receipt Date: 20221102
  Transmission Date: 20230113
  Serious: Yes (Death, Hospitalization)
  Sender: FDA-Public Use
  Company Number: CZ-ABBVIE-22K-217-4364123-00

PATIENT
  Age: 66 Year
  Sex: Female

DRUGS (1)
  1. HUMIRA [Suspect]
     Active Substance: ADALIMUMAB
     Indication: Rheumatoid arthritis
     Route: 058
     Dates: start: 20140605, end: 20220317

REACTIONS (4)
  - Ileus [Fatal]
  - Colon neoplasm [Fatal]
  - Intestinal perforation [Fatal]
  - Post procedural complication [Fatal]

NARRATIVE: CASE EVENT DATE: 20220324
